FAERS Safety Report 23760210 (Version 1)
Quarter: 2024Q2

REPORT INFORMATION
  Report Type: Spontaneous
  Country: US (occurrence: US)
  Receive Date: 20240419
  Receipt Date: 20240419
  Transmission Date: 20240716
  Serious: Yes (Hospitalization)
  Sender: FDA-Public Use
  Company Number: US-UROGEN PHARMA LTD.-2024-UGN-000036

PATIENT

DRUGS (1)
  1. JELMYTO [Suspect]
     Active Substance: MITOMYCIN
     Indication: Transitional cell cancer of the renal pelvis and ureter
     Dosage: 8CC OR 32 MILLIGRAM, ONCE A WEEK (INSTILLATION)
     Dates: start: 20240229, end: 20240229

REACTIONS (3)
  - Urinary tract infection [Unknown]
  - Catheter site haemorrhage [Unknown]
  - Flank pain [Unknown]

NARRATIVE: CASE EVENT DATE: 20240229
